FAERS Safety Report 17800511 (Version 4)
Quarter: 2020Q2

REPORT INFORMATION
  Report Type: Report from Study
  Country: CO (occurrence: CO)
  Receive Date: 20200518
  Receipt Date: 20200612
  Transmission Date: 20200714
  Serious: Yes (Hospitalization)
  Sender: FDA-Public Use
  Company Number: CO-ACTELION-A-US2020-205279

PATIENT
  Age: 28 Year
  Sex: Female

DRUGS (4)
  1. VENTAVIS [Suspect]
     Active Substance: ILOPROST
     Dosage: 5 MCG, 6ID
     Route: 055
     Dates: start: 20200507, end: 20200521
  2. EPOPROSTENOL. [Concomitant]
     Active Substance: EPOPROSTENOL
  3. VENTAVIS [Suspect]
     Active Substance: ILOPROST
     Indication: PULMONARY ARTERIAL HYPERTENSION
     Dosage: 5 MCG, 6ID
     Route: 055
     Dates: start: 20191228, end: 20200502
  4. SILDENAFIL. [Concomitant]
     Active Substance: SILDENAFIL
     Indication: PULMONARY HYPERTENSION
     Dosage: UNK

REACTIONS (3)
  - Maternal exposure during pregnancy [Recovered/Resolved]
  - Premature delivery [Unknown]
  - Caesarean section [Recovering/Resolving]

NARRATIVE: CASE EVENT DATE: 20200430
